FAERS Safety Report 20773465 (Version 1)
Quarter: 2022Q2

REPORT INFORMATION
  Report Type: Spontaneous
  Country: US (occurrence: None)
  Receive Date: 20220501
  Receipt Date: 20220501
  Transmission Date: 20220721
  Serious: Yes (Other)
  Sender: FDA-Public Use
  Company Number: None

PATIENT
  Age: 98 Year
  Sex: Male
  Weight: 77 kg

DRUGS (12)
  1. ABIRATERONE [Suspect]
     Active Substance: ABIRATERONE
     Indication: Prostate cancer
     Dosage: FREQUENCY : DAILY;?
     Route: 048
     Dates: start: 20210515, end: 20220427
  2. LOSARTAN [Concomitant]
     Active Substance: LOSARTAN
  3. methenamine 1 gram [Concomitant]
  4. latanoprost 0,005% [Concomitant]
  5. LUPRON [Concomitant]
     Active Substance: LEUPROLIDE ACETATE
  6. OMEPRAZOLE [Concomitant]
     Active Substance: OMEPRAZOLE
  7. TRAZODONE [Concomitant]
     Active Substance: TRAZODONE HYDROCHLORIDE
  8. GABAPENTIN [Concomitant]
     Active Substance: GABAPENTIN
  9. ATORVASTATIN [Concomitant]
     Active Substance: ATORVASTATIN
  10. AMLODIPINE BESYLATE [Concomitant]
     Active Substance: AMLODIPINE BESYLATE
  11. vitamin D3 1000 units [Concomitant]
  12. ferrous gluconate 325mg [Concomitant]

REACTIONS (4)
  - Oedema peripheral [None]
  - Mobility decreased [None]
  - Therapy interrupted [None]
  - Blister rupture [None]

NARRATIVE: CASE EVENT DATE: 20220401
